FAERS Safety Report 19808119 (Version 1)
Quarter: 2021Q3

REPORT INFORMATION
  Report Type: Spontaneous
  Country: US (occurrence: US)
  Receive Date: 20210908
  Receipt Date: 20210908
  Transmission Date: 20211014
  Serious: Yes (Hospitalization, Other)
  Sender: FDA-Public Use
  Company Number: None

PATIENT
  Age: 76 Year
  Sex: Male
  Weight: 67.8 kg

DRUGS (1)
  1. BREXUCABTAGENE AUTOLEUCEL. [Suspect]
     Active Substance: BREXUCABTAGENE AUTOLEUCEL
     Indication: MANTLE CELL LYMPHOMA

REACTIONS (10)
  - Pyrexia [None]
  - Tachypnoea [None]
  - Acute kidney injury [None]
  - Pancytopenia [None]
  - Dyspnoea [None]
  - Pleural effusion [None]
  - Hypotension [None]
  - Bradycardia [None]
  - Hypernatraemia [None]
  - Agitation [None]

NARRATIVE: CASE EVENT DATE: 20210624
